FAERS Safety Report 11101960 (Version 4)
Quarter: 2015Q2

REPORT INFORMATION
  Report Type: Spontaneous
  Country: BR (occurrence: BR)
  Receive Date: 20150510
  Receipt Date: 20150610
  Transmission Date: 20150821
  Serious: Yes (Other)
  Sender: FDA-Public Use
  Company Number: BR-AMGEN-BRASP2012007338

PATIENT
  Age: 70 Year
  Sex: Female
  Weight: 70 kg

DRUGS (10)
  1. ADALIN                             /00005701/ [Concomitant]
     Indication: BLOOD PRESSURE
     Dosage: UNK
  2. PURAN [Concomitant]
     Active Substance: LEVOTHYROXINE SODIUM
     Indication: THYROID DISORDER
     Dosage: 1 TABLET OF STRENGTH 100 MG DAILY
     Route: 048
  3. RIVOTRIL [Concomitant]
     Active Substance: CLONAZEPAM
     Indication: SLEEP DISORDER
     Dosage: UNK
  4. ARADOIS [Concomitant]
     Active Substance: LOSARTAN POTASSIUM
     Indication: BLOOD PRESSURE
     Dosage: 1 TABLET OF STRENGTH 4 MG DAILY
  5. LOSARTAN [Concomitant]
     Active Substance: LOSARTAN
     Dosage: 50 MG, 1X/DAY
  6. CLORANA [Concomitant]
     Active Substance: HYDROCHLOROTHIAZIDE
     Dosage: UNK
  7. ENBREL [Suspect]
     Active Substance: ETANERCEPT
     Indication: RHEUMATOID ARTHRITIS
     Dosage: 25 MG, 2X/WEEK
     Route: 058
     Dates: start: 20080409
  8. ENBREL [Suspect]
     Active Substance: ETANERCEPT
     Dosage: 50 MG, 1X/WEEK
     Route: 058
  9. ENBREL [Suspect]
     Active Substance: ETANERCEPT
     Dosage: 50 MG, WEEKLY
     Route: 065
  10. LABIRIN [Concomitant]
     Active Substance: BETAHISTINE
     Indication: LABYRINTHITIS
     Dosage: 1 TABLET OF STRENGTH 16 (UNSPECIFIED UNIT) DAILY

REACTIONS (9)
  - Neoplasm malignant [Unknown]
  - Dry throat [Unknown]
  - Large granular lymphocytosis [Unknown]
  - Lymphocytosis [Unknown]
  - Dry mouth [Unknown]
  - Wrong technique in drug usage process [Unknown]
  - Polycythaemia [Unknown]
  - Wound [Unknown]
  - Cough [Unknown]

NARRATIVE: CASE EVENT DATE: 20080409
